FAERS Safety Report 12647616 (Version 4)
Quarter: 2016Q3

REPORT INFORMATION
  Report Type: Report from Study
  Country: US (occurrence: US)
  Receive Date: 20160812
  Receipt Date: 20160923
  Transmission Date: 20161109
  Serious: Yes (Hospitalization, Other)
  Sender: FDA-Public Use
  Company Number: US-BAYER-2016-100202

PATIENT
  Age: 33 Year
  Sex: Female
  Weight: 62.13 kg

DRUGS (18)
  1. ADEMPAS [Suspect]
     Active Substance: RIOCIGUAT
     Indication: PULMONARY HYPERTENSION
     Dosage: UNK
     Dates: start: 20160330
  2. BUMETANIDE. [Concomitant]
     Active Substance: BUMETANIDE
  3. NEXIUM [Concomitant]
     Active Substance: ESOMEPRAZOLE MAGNESIUM
  4. ADEMPAS [Suspect]
     Active Substance: RIOCIGUAT
     Indication: PULMONARY HYPERTENSION
     Dosage: 2.5 MG, TID
     Route: 048
     Dates: start: 201606
  5. LETAIRIS [Concomitant]
     Active Substance: AMBRISENTAN
     Dosage: UNK
  6. METOLAZONE. [Concomitant]
     Active Substance: METOLAZONE
  7. PROAIR HFA [Concomitant]
     Active Substance: ALBUTEROL SULFATE
  8. ADEMPAS [Suspect]
     Active Substance: RIOCIGUAT
     Indication: PULMONARY HYPERTENSION
     Dosage: 2.5 MG, TID
     Route: 048
  9. VELETRI [Concomitant]
     Active Substance: EPOPROSTENOL
     Dosage: UNK
  10. NYSTATIN. [Concomitant]
     Active Substance: NYSTATIN
  11. LEVOTHYROXINE. [Concomitant]
     Active Substance: LEVOTHYROXINE
  12. ADEMPAS [Suspect]
     Active Substance: RIOCIGUAT
     Indication: PULMONARY HYPERTENSION
     Dosage: 2 MG, TID
     Route: 048
  13. ADEMPAS [Suspect]
     Active Substance: RIOCIGUAT
     Indication: PULMONARY HYPERTENSION
     Dosage: 2.5 MG, UNK
  14. POTASSIUM [Concomitant]
     Active Substance: POTASSIUM
  15. LASIX [Concomitant]
     Active Substance: FUROSEMIDE
  16. DIGOXIN. [Concomitant]
     Active Substance: DIGOXIN
  17. SPIRONOLACTONE. [Concomitant]
     Active Substance: SPIRONOLACTONE
  18. CLONAZEPAM. [Concomitant]
     Active Substance: CLONAZEPAM

REACTIONS (16)
  - Pulmonary hypertension [None]
  - Pyrexia [Unknown]
  - Dyspnoea [None]
  - Cardiac failure [None]
  - Catheter site warmth [Unknown]
  - Device related infection [None]
  - Device related infection [None]
  - Dyspnoea [None]
  - Abdominal distension [None]
  - Sepsis [Unknown]
  - Fluid retention [None]
  - Hospitalisation [Unknown]
  - Medical procedure [Unknown]
  - Catheter site swelling [Unknown]
  - Fatigue [None]
  - Clostridium difficile infection [None]

NARRATIVE: CASE EVENT DATE: 20160818
